FAERS Safety Report 25406827 (Version 1)
Quarter: 2025Q2

REPORT INFORMATION
  Report Type: Spontaneous
  Country: PT (occurrence: PT)
  Receive Date: 20250606
  Receipt Date: 20250606
  Transmission Date: 20250717
  Serious: Yes (Hospitalization)
  Sender: PFIZER
  Company Number: PT-PFIZER INC-202500115016

PATIENT
  Age: 67 Year
  Sex: Male

DRUGS (1)
  1. CLINDAMYCIN HYDROCHLORIDE [Suspect]
     Active Substance: CLINDAMYCIN HYDROCHLORIDE
     Indication: Staphylococcal sepsis

REACTIONS (6)
  - Clostridium difficile colitis [Recovering/Resolving]
  - Megacolon [Recovering/Resolving]
  - Diarrhoea [Recovering/Resolving]
  - Pancreatic failure [Recovering/Resolving]
  - Intestinal atony [Recovering/Resolving]
  - Pseudomembranous colitis [Recovering/Resolving]
